FAERS Safety Report 11055770 (Version 1)
Quarter: 2015Q2

REPORT INFORMATION
  Report Type: Spontaneous
  Country: GB (occurrence: GB)
  Receive Date: 20150422
  Receipt Date: 20150422
  Transmission Date: 20150821
  Serious: Yes (Other)
  Sender: FDA-Public Use
  Company Number: GB-009507513-1504GBR018824

PATIENT
  Age: 1 Year
  Sex: Female
  Weight: 7 kg

DRUGS (6)
  1. FOLIC ACID. [Concomitant]
     Active Substance: FOLIC ACID
     Dosage: 1 ML, WEEKLY
     Dates: start: 20130930
  2. CETIRIZINE HYDROCHLORIDE. [Concomitant]
     Active Substance: CETIRIZINE HYDROCHLORIDE
     Dosage: 1.5 ML, BID
     Dates: start: 20150118
  3. VITAMINS (UNSPECIFIED) [Concomitant]
     Active Substance: VITAMINS
     Dosage: 0.3 ML DAILY
     Dates: start: 20130930
  4. SODIUM FEREDETATE [Concomitant]
     Active Substance: SODIUM FEREDETATE
     Dosage: 1 ML DAILY
     Dates: start: 20130930
  5. CLENIL MODULITE [Concomitant]
     Active Substance: BECLOMETHASONE DIPROPIONATE
     Dosage: 1-2 PUFF TWICE A DAY
     Dates: start: 20150313
  6. MONTELUKAST SODIUM. [Suspect]
     Active Substance: MONTELUKAST SODIUM
     Dosage: UNK
     Route: 065
     Dates: start: 20150413

REACTIONS (5)
  - Contusion [Recovered/Resolved]
  - Skin exfoliation [Recovered/Resolved]
  - Platelet count increased [Recovered/Resolved]
  - Petechiae [Recovered/Resolved]
  - White blood cell count increased [Recovered/Resolved]

NARRATIVE: CASE EVENT DATE: 20150413
